FAERS Safety Report 14735344 (Version 7)
Quarter: 2018Q2

REPORT INFORMATION
  Report Type: Spontaneous
  Country: NL (occurrence: NL)
  Receive Date: 20180409
  Receipt Date: 20180605
  Transmission Date: 20180711
  Serious: Yes (Other)
  Sender: FDA-Public Use
  Company Number: NL-PFIZER INC-2018138205

PATIENT
  Age: 5 Year
  Sex: Male
  Weight: 18 kg

DRUGS (7)
  1. LAMOTRIGINE. [Concomitant]
     Active Substance: LAMOTRIGINE
     Indication: STATUS EPILEPTICUS
     Dosage: UNK (MAINTENANCE THERAPY)
  2. ZONISAMIDE. [Suspect]
     Active Substance: ZONISAMIDE
     Indication: STATUS EPILEPTICUS
     Dosage: 100 MG, DAILY
     Dates: start: 201602, end: 201606
  3. CLOBAZAM [Concomitant]
     Active Substance: CLOBAZAM
     Indication: STATUS EPILEPTICUS
     Dosage: UNK (MAINTENANCE THERAPY)
  4. PHENYTOIN. [Concomitant]
     Active Substance: PHENYTOIN
     Dosage: 2 MG/KG/DAY DOSE
     Route: 042
  5. LEVETIRACETAM. [Suspect]
     Active Substance: LEVETIRACETAM
     Indication: STATUS EPILEPTICUS
     Dosage: MAINTENANCE THERAPY
     Dates: start: 2015, end: 201505
  6. TOPIRAMATE. [Suspect]
     Active Substance: TOPIRAMATE
     Indication: STATUS EPILEPTICUS
     Dosage: UNK
     Dates: start: 201505
  7. PHENYTOIN. [Concomitant]
     Active Substance: PHENYTOIN
     Indication: STATUS EPILEPTICUS
     Dosage: UNK (MAINTENANCE THERAPY)
     Route: 042

REACTIONS (7)
  - Abnormal behaviour [Unknown]
  - Apathy [Unknown]
  - Encephalopathy [Recovered/Resolved]
  - General physical health deterioration [Unknown]
  - Status epilepticus [Unknown]
  - Ataxia [Recovered/Resolved]
  - Dysarthria [Recovered/Resolved]
